FAERS Safety Report 4519911-1 (Version None)
Quarter: 2004Q4

REPORT INFORMATION
  Report Type: 
  Country: None (occurrence: None)
  Receive Date: 20041202
  Receipt Date: 20041202
  Transmission Date: 20050328
  Serious: Yes (Life-Threatening, Hospitalization)
  Sender: FDA-Public Use
  Company Number: None

PATIENT
  Age: 79 Year
  Sex: Female
  Weight: 59.4 kg

DRUGS (1)
  1. METFORMIN HCL [Suspect]
     Dosage: 1000 MG BID ORAL
     Route: 048
     Dates: start: 20041025, end: 20041128

REACTIONS (5)
  - ACUTE RESPIRATORY FAILURE [None]
  - HAEMODIALYSIS [None]
  - MEDICATION ERROR [None]
  - METABOLIC ACIDOSIS [None]
  - RENAL FAILURE ACUTE [None]
